FAERS Safety Report 7033018-3 (Version None)
Quarter: 2010Q4

REPORT INFORMATION
  Report Type: 
  Country: None (occurrence: None)
  Receive Date: 20101007
  Receipt Date: 20100928
  Transmission Date: 20110411
  Serious: Yes (Other)
  Sender: FDA-Public Use
  Company Number: CO-PFIZER INC-2010124242

PATIENT
  Age: 34 Year
  Sex: Female

DRUGS (3)
  1. DEPO-PROVERA [Suspect]
     Indication: OFF LABEL USE
     Dosage: UNK
     Dates: start: 20030101
  2. DEPO-PROVERA [Suspect]
     Indication: ENDOMETRITIS
  3. DEPO-PROVERA [Suspect]
     Indication: ANOVULATORY CYCLE

REACTIONS (3)
  - COMPLICATED MIGRAINE [None]
  - HYPOAESTHESIA [None]
  - HYPOAESTHESIA FACIAL [None]
